FAERS Safety Report 11147441 (Version 3)
Quarter: 2015Q3

REPORT INFORMATION
  Report Type: Spontaneous
  Country: IT (occurrence: IT)
  Receive Date: 20150529
  Receipt Date: 20150723
  Transmission Date: 20151125
  Serious: Yes (Death)
  Sender: FDA-Public Use
  Company Number: IT-ROCHE-1581729

PATIENT
  Age: 27 Year
  Sex: Male

DRUGS (5)
  1. DIAZEPAM. [Suspect]
     Active Substance: DIAZEPAM
     Route: 048
  2. DIAZEPAM. [Suspect]
     Active Substance: DIAZEPAM
     Indication: PSYCHOMOTOR HYPERACTIVITY
     Dosage: 10 GTT
     Route: 048
     Dates: start: 20080113, end: 20080122
  3. RISPERDAL [Suspect]
     Active Substance: RISPERIDONE
     Indication: DELUSIONAL DISORDER, PERSECUTORY TYPE
     Dosage: 1 MG/ML ORAL DROPS, SOLUTION^ 1 X 100 ML BOTTLE
     Route: 048
     Dates: start: 20080113, end: 20080122
  4. RISPERDAL [Suspect]
     Active Substance: RISPERIDONE
     Route: 048
  5. DIAZEPAM. [Suspect]
     Active Substance: DIAZEPAM
     Route: 048

REACTIONS (1)
  - Completed suicide [Fatal]

NARRATIVE: CASE EVENT DATE: 20080122
